FAERS Safety Report 5908786-1 (Version None)
Quarter: 2008Q4

REPORT INFORMATION
  Report Type: 
  Country: None (occurrence: None)
  Receive Date: 20081006
  Receipt Date: 20080926
  Transmission Date: 20090506
  Serious: Yes (Other)
  Sender: FDA-Public Use
  Company Number: PHBS2008GB05857

PATIENT
  Age: 28 Year
  Sex: Female

DRUGS (7)
  1. CYCLOSPORINE [Suspect]
     Indication: CONJUNCTIVOPLASTY
     Dosage: UNK
     Dates: start: 20050801, end: 20060201
  2. CYCLOSPORINE [Suspect]
     Indication: STEM CELL TRANSPLANT
  3. CYCLOSPORINE [Suspect]
     Indication: CONJUNCTIVITIS
  4. MYCOPHENOLATE MOFETIL [Suspect]
     Indication: CONJUNCTIVOPLASTY
     Dosage: UNK
     Dates: start: 20040601, end: 20060501
  5. MYCOPHENOLATE MOFETIL [Suspect]
     Indication: STEM CELL TRANSPLANT
  6. MYCOPHENOLATE MOFETIL [Suspect]
     Indication: CONJUNCTIVITIS
  7. PREDNISOLONE [Suspect]

REACTIONS (8)
  - BETA HAEMOLYTIC STREPTOCOCCAL INFECTION [None]
  - CANDIDIASIS [None]
  - CHOROIDAL HAEMORRHAGE [None]
  - CORNEAL TRANSPLANT [None]
  - EYE INFECTION STAPHYLOCOCCAL [None]
  - KERATITIS BACTERIAL [None]
  - PNEUMONIA STREPTOCOCCAL [None]
  - STEM CELL TRANSPLANT [None]
